FAERS Safety Report 7854436-7 (Version None)
Quarter: 2011Q4

REPORT INFORMATION
  Report Type: 
  Country: None (occurrence: None)
  Receive Date: 20111026
  Receipt Date: 20111024
  Transmission Date: 20120403
  Serious: Yes (Other)
  Sender: FDA-Public Use
  Company Number: US-AMGEN-USASP2011046315

PATIENT
  Sex: Female

DRUGS (3)
  1. ANALGESICS [Concomitant]
     Indication: PAIN
  2. ANTINEOPLASTIC AGENTS [Concomitant]
     Indication: CHEMOTHERAPY
  3. NPLATE [Suspect]
     Indication: PLATELET COUNT DECREASED
     Dates: start: 20101201

REACTIONS (3)
  - PLATELET COUNT DECREASED [None]
  - MUSCULOSKELETAL PAIN [None]
  - PAIN IN EXTREMITY [None]
